FAERS Safety Report 7377968-7 (Version None)
Quarter: 2011Q1

REPORT INFORMATION
  Report Type: 
  Country: None (occurrence: None)
  Receive Date: 20110328
  Receipt Date: 20110321
  Transmission Date: 20110831
  Serious: Yes (Other)
  Sender: FDA-Public Use
  Company Number: US-AMGEN-USASP2010013446

PATIENT
  Age: 67 Year
  Sex: Female

DRUGS (7)
  1. IMMUNOGLOBULINS [Concomitant]
     Dosage: 3 A?G/KG, UNK
     Dates: start: 20100719
  2. RITUXIMAB [Concomitant]
     Dosage: UNK
     Dates: start: 20091221
  3. CORTICOSTEROIDS [Concomitant]
     Dosage: 2 UNK, UNK
     Dates: start: 20091231
  4. DANAZOL [Concomitant]
     Dosage: UNK
     Dates: start: 20091231
  5. PREDNISONE [Concomitant]
  6. NPLATE [Suspect]
     Indication: IDIOPATHIC THROMBOCYTOPENIC PURPURA
     Dosage: 2 A?G/KG, UNK
     Dates: start: 20100927
  7. ELTROMBOPAG [Concomitant]
     Dosage: UNK

REACTIONS (2)
  - BONE MARROW RETICULIN FIBROSIS [None]
  - NORMOCHROMIC NORMOCYTIC ANAEMIA [None]
